FAERS Safety Report 6070002-0 (Version None)
Quarter: 2009Q1

REPORT INFORMATION
  Report Type: 
  Country: None (occurrence: None)
  Receive Date: 20090209
  Receipt Date: 20090128
  Transmission Date: 20090719
  Serious: Yes (Hospitalization, Other)
  Sender: FDA-Public Use
  Company Number: PHHY2009DE03783

PATIENT

DRUGS (3)
  1. LEPONEX [Suspect]
     Indication: PSYCHOTIC DISORDER
     Dosage: 100 MG, BID
  2. SEROQUEL [Suspect]
     Indication: PSYCHOTIC DISORDER
     Dosage: 400 MG AT  NIGHT
  3. MELNEURIN [Concomitant]
     Indication: PSYCHOTIC DISORDER

REACTIONS (7)
  - CARDIOMYOPATHY [None]
  - CEREBROVASCULAR ACCIDENT [None]
  - DELIRIUM [None]
  - DISORIENTATION [None]
  - MUSCULOSKELETAL STIFFNESS [None]
  - PSYCHOTIC DISORDER [None]
  - WEIGHT INCREASED [None]
